FAERS Safety Report 4838599-3 (Version None)
Quarter: 2005Q4

REPORT INFORMATION
  Report Type: 
  Country: None (occurrence: None)
  Receive Date: 20051123
  Receipt Date: 20051123
  Transmission Date: 20060501
  Serious: Yes (Hospitalization)
  Sender: FDA-Public Use
  Company Number: None

PATIENT
  Age: 87 Year
  Sex: Female

DRUGS (7)
  1. CELECOXIB   100MG   SEARLE [Suspect]
     Indication: OSTEOARTHRITIS
     Dosage: 100MG  DAILY   PO
     Route: 048
  2. TOPROL-XL [Concomitant]
  3. IMDUR [Concomitant]
  4. PRILOSEC [Concomitant]
  5. THYROID TAB [Concomitant]
  6. VALIUM [Concomitant]
  7. ZOCOR [Concomitant]

REACTIONS (1)
  - RENAL FAILURE [None]
